FAERS Safety Report 7599628-X (Version None)
Quarter: 2011Q3

REPORT INFORMATION
  Report Type: 
  Country: None (occurrence: None)
  Receive Date: 20110711
  Receipt Date: 20110613
  Transmission Date: 20111222
  Serious: No
  Sender: FDA-Public Use
  Company Number: US-ROXANE LABORATORIES, INC.-2011-RO-00959RO

PATIENT
  Age: 73 Year
  Sex: Female

DRUGS (2)
  1. METOPROLOL TARTRATE [Concomitant]
     Dosage: 25 MG
  2. ANASTROZOLE [Suspect]
     Indication: BREAST CYST
     Dosage: 1 MG
     Route: 048

REACTIONS (2)
  - ARTHRALGIA [None]
  - PRURITUS [None]
